FAERS Safety Report 5495559-X (Version None)
Quarter: 2007Q4

REPORT INFORMATION
  Report Type: 
  Country: None (occurrence: None)
  Receive Date: 20071025
  Receipt Date: 20071017
  Transmission Date: 20080405
  Serious: Yes (Death)
  Sender: FDA-Public Use
  Company Number: PHBS2007JP17402

PATIENT
  Age: 27 Year
  Sex: Female

DRUGS (5)
  1. AZATHIOPRINE [Concomitant]
     Indication: AUTOIMMUNE HEPATITIS
     Dosage: 50 MG/DAY
     Route: 065
  2. AZATHIOPRINE [Concomitant]
     Dosage: 25 MG/DAY
     Route: 065
  3. PREDONINE [Concomitant]
     Indication: AUTOIMMUNE HEPATITIS
     Dosage: 30 MG/DAY
     Route: 065
  4. PREDONINE [Concomitant]
     Dosage: 40 MG/DAY
     Route: 065
  5. CYCLOSPORINE [Suspect]
     Indication: AUTOIMMUNE HEPATITIS
     Dosage: 100 MG/DAY
     Route: 065

REACTIONS (5)
  - AUTOIMMUNE HEPATITIS [None]
  - CONDITION AGGRAVATED [None]
  - DEPRESSED LEVEL OF CONSCIOUSNESS [None]
  - HYPOXIA [None]
  - PNEUMOCYSTIS JIROVECI PNEUMONIA [None]
